FAERS Safety Report 11218306 (Version 1)
Quarter: 2015Q2

REPORT INFORMATION
  Report Type: Report from Study
  Country: US (occurrence: US)
  Receive Date: 20150625
  Receipt Date: 20150625
  Transmission Date: 20150821
  Serious: Yes (Hospitalization, Other)
  Sender: FDA-Public Use
  Company Number: US-GILEAD-2015-0159941

PATIENT
  Age: 81 Year
  Sex: Female

DRUGS (10)
  1. WARFARIN [Concomitant]
     Active Substance: WARFARIN
  2. CLARITIN [Concomitant]
     Active Substance: LORATADINE
  3. TRAVATAN Z [Concomitant]
     Active Substance: TRAVOPROST
  4. ACICLOVIR [Concomitant]
     Active Substance: ACYCLOVIR
  5. AMBRISENTAN [Suspect]
     Active Substance: AMBRISENTAN
     Indication: PULMONARY HYPERTENSION
     Dosage: 5 MG, QD
     Route: 065
     Dates: start: 20081228
  6. MVI                                /01825701/ [Concomitant]
  7. VITAMIN D                          /00107901/ [Concomitant]
     Active Substance: ERGOCALCIFEROL
  8. REVATIO [Suspect]
     Active Substance: SILDENAFIL CITRATE
  9. HYDROCHLOROTHIAZIDE. [Concomitant]
     Active Substance: HYDROCHLOROTHIAZIDE
  10. LASIX [Concomitant]
     Active Substance: FUROSEMIDE

REACTIONS (5)
  - Hearing impaired [Unknown]
  - Sinus disorder [Unknown]
  - Alopecia [Unknown]
  - Bronchitis [Not Recovered/Not Resolved]
  - Pneumonia [Not Recovered/Not Resolved]
